FAERS Safety Report 25978397 (Version 1)
Quarter: 2025Q4

REPORT INFORMATION
  Report Type: Spontaneous
  Country: US (occurrence: US)
  Receive Date: 20251030
  Receipt Date: 20251030
  Transmission Date: 20260117
  Serious: Yes (Hospitalization, Other)
  Sender: AMNEAL
  Company Number: US-AMNEAL-2025-AMRX-02496

PATIENT
  Sex: Female
  Weight: 116 kg

DRUGS (1)
  1. BACLOFEN [Suspect]
     Active Substance: BACLOFEN
     Indication: Muscle spasticity
     Dosage: UNK
     Route: 037

REACTIONS (10)
  - Hot flush [Recovered/Resolved]
  - Withdrawal syndrome [Recovered/Resolved]
  - Muscle spasms [Recovered/Resolved]
  - Device connection issue [Recovered/Resolved]
  - Device malfunction [Unknown]
  - Device physical property issue [Recovered/Resolved]
  - Complication associated with device [Unknown]
  - Device issue [Unknown]
  - Device malfunction [Unknown]
  - Device kink [Unknown]

NARRATIVE: CASE EVENT DATE: 20250101
